FAERS Safety Report 5508800-1 (Version None)
Quarter: 2007Q4

REPORT INFORMATION
  Report Type: 
  Country: None (occurrence: None)
  Receive Date: 20071105
  Receipt Date: 20071029
  Transmission Date: 20080405
  Serious: Yes (Other)
  Sender: FDA-Public Use
  Company Number: 2007SP021902

PATIENT
  Sex: Female

DRUGS (2)
  1. CLARINEX [Suspect]
     Indication: MULTIPLE ALLERGIES
     Dosage: PO
     Route: 048
     Dates: start: 20070601
  2. CLARITIN [Concomitant]

REACTIONS (3)
  - FEELING ABNORMAL [None]
  - JUDGEMENT IMPAIRED [None]
  - ROAD TRAFFIC ACCIDENT [None]
